FAERS Safety Report 4692900-2 (Version None)
Quarter: 2005Q2

REPORT INFORMATION
  Report Type: 
  Country: None (occurrence: None)
  Receive Date: 20050615
  Receipt Date: 20050607
  Transmission Date: 20051028
  Serious: Yes (Death)
  Sender: FDA-Public Use
  Company Number: RU-2005-001487

PATIENT
  Age: 19 Year
  Sex: Female

DRUGS (2)
  1. YARINA [Suspect]
     Indication: ORAL CONTRACEPTION
     Dosage: 1 TAB(S), 1X.DAY, ORAL
     Route: 048
     Dates: start: 20041209, end: 20041219
  2. DIPYRONE TAB [Concomitant]

REACTIONS (7)
  - ASTHENIA [None]
  - CARDIAC FAILURE [None]
  - DIABETIC COMA [None]
  - PANCREATIC DISORDER [None]
  - SHOCK [None]
  - THIRST [None]
  - WHEEZING [None]
